FAERS Safety Report 5448166-9 (Version None)
Quarter: 2007Q3

REPORT INFORMATION
  Report Type: 
  Country: None (occurrence: None)
  Receive Date: 20070905
  Receipt Date: 20070821
  Transmission Date: 20080115
  Serious: Yes (Other)
  Sender: FDA-Public Use
  Company Number: 100#08#2007-03286

PATIENT
  Age: 12 Year
  Sex: Female

DRUGS (4)
  1. CEFTAZIDIME (CEFAZIDIME) (CEFTAZIDIME SODIUM) [Suspect]
     Indication: ANTIBIOTIC PROPHYLAXIS
  2. CYCLOSPORINE [Suspect]
     Indication: ASTHMA
  3. GENTAMICIN [Suspect]
     Indication: ANTIBIOTIC PROPHYLAXIS
     Dosage: INTRAVENOUS (NOT OTHERWISE SPECIFIED)
     Route: 042
  4. TOBRAMYCIN [Suspect]
     Indication: DRUG USE FOR UNKNOWN INDICATION

REACTIONS (3)
  - HAEMODIALYSIS [None]
  - RENAL FAILURE ACUTE [None]
  - RENAL TUBULAR NECROSIS [None]
